FAERS Safety Report 5586956-2 (Version None)
Quarter: 2008Q1

REPORT INFORMATION
  Report Type: 
  Country: None (occurrence: None)
  Receive Date: 20080107
  Receipt Date: 20071226
  Transmission Date: 20080703
  Serious: Yes (Death)
  Sender: FDA-Public Use
  Company Number: 2007JP005758

PATIENT
  Age: 9 Year
  Sex: Male
  Weight: 22 kg

DRUGS (10)
  1. FUNGUARD(MICAFUNGIN) INJECTION [Suspect]
     Indication: FEBRILE NEUTROPENIA
     Dosage: 125 MG, UID/QD, IV DRIP
     Route: 041
     Dates: start: 20070802, end: 20070807
  2. DIFLUCAN [Concomitant]
  3. TAZOCIN (PIPERACILLIN SODIUM, TAZOBACTAM SODIUM) INJECTION [Concomitant]
  4. PREDNISOLONE [Concomitant]
  5. VENILON (IMMUNOGLOBULIN HUMAN NORMAL) INJECTION [Concomitant]
  6. NEUTROGIN (LENOGRASTIM) INJECTION [Concomitant]
  7. ASVERIN (TIPEPIDINE HIBENZATE) [Concomitant]
  8. ZADITEN [Concomitant]
  9. MUCODYNE (CARBOCISTEINE) [Concomitant]
  10. GASTER  GASTER INJECTION [Concomitant]

REACTIONS (4)
  - INFECTION [None]
  - MENINGITIS [None]
  - NO THERAPEUTIC RESPONSE [None]
  - SEPSIS [None]
